FAERS Safety Report 21649304 (Version 1)
Quarter: 2022Q4

REPORT INFORMATION
  Report Type: Report from Study
  Country: GB (occurrence: GB)
  Receive Date: 20221128
  Receipt Date: 20221128
  Transmission Date: 20230113
  Serious: Yes (Death)
  Sender: FDA-Public Use
  Company Number: GB-SUN PHARMACEUTICAL INDUSTRIES LTD-2022R1-365931

PATIENT
  Age: 55 Year
  Sex: Male

DRUGS (3)
  1. CISPLATIN [Suspect]
     Active Substance: CISPLATIN
     Indication: Squamous cell carcinoma
     Dosage: 40 MILLIGRAM/SQ. METER, WEEKLY
     Route: 065
  2. DOCETAXEL [Suspect]
     Active Substance: DOCETAXEL
     Indication: Squamous cell carcinoma
     Dosage: UNK
     Route: 065
  3. FLUOROURACIL [Suspect]
     Active Substance: FLUOROURACIL
     Indication: Squamous cell carcinoma
     Dosage: UNK
     Route: 065

REACTIONS (1)
  - Disease recurrence [Fatal]
